FAERS Safety Report 7072176-1 (Version None)
Quarter: 2010Q4

REPORT INFORMATION
  Report Type: 
  Country: None (occurrence: None)
  Receive Date: 20101029
  Receipt Date: 20100208
  Transmission Date: 20110411
  Serious: No
  Sender: FDA-Public Use
  Company Number: A0834977A

PATIENT
  Age: 59 Year
  Sex: Female

DRUGS (9)
  1. ADVAIR DISKUS 100/50 [Suspect]
     Indication: CHRONIC OBSTRUCTIVE PULMONARY DISEASE
     Dosage: 1PUFF TWICE PER DAY
     Route: 055
     Dates: start: 20091001
  2. GERITOL COMPLETE [Concomitant]
  3. DICLOFENAC SODIUM [Concomitant]
  4. DARVOCET [Concomitant]
  5. LORAZEPAM [Concomitant]
  6. ASPIRIN [Concomitant]
  7. PROVENTIL [Concomitant]
     Route: 055
  8. NEBULIZER [Concomitant]
  9. SPIRIVA [Concomitant]

REACTIONS (4)
  - COUGH [None]
  - DRY MOUTH [None]
  - DYSPNOEA [None]
  - PRODUCT QUALITY ISSUE [None]
